FAERS Safety Report 6372362-X (Version None)
Quarter: 2009Q3

REPORT INFORMATION
  Report Type: 
  Country: None (occurrence: None)
  Receive Date: 20090924
  Receipt Date: 20090310
  Transmission Date: 20100115
  Serious: No
  Sender: FDA-Public Use
  Company Number: US-ASTRAZENECA-2008UW22368

PATIENT
  Age: 36 Year
  Sex: Female
  Weight: 136.1 kg

DRUGS (3)
  1. SEROQUEL [Suspect]
     Indication: SLEEP DISORDER
     Dosage: 50-300MG
     Route: 048
     Dates: start: 20060101
  2. SEROQUEL [Suspect]
     Indication: AFFECTIVE DISORDER
     Dosage: 50-300MG
     Route: 048
     Dates: start: 20060101
  3. SEROQUEL [Suspect]
     Indication: BIPOLAR DISORDER
     Dosage: 50-300MG
     Route: 048
     Dates: start: 20060101

REACTIONS (4)
  - BLOOD CHOLESTEROL INCREASED [None]
  - DIABETES MELLITUS [None]
  - EXOSTOSIS [None]
  - MENISCUS LESION [None]
